FAERS Safety Report 7836446-9 (Version None)
Quarter: 2011Q4

REPORT INFORMATION
  Report Type: 
  Country: None (occurrence: None)
  Receive Date: 20111024
  Receipt Date: 20110609
  Transmission Date: 20120403
  Serious: No
  Sender: FDA-Public Use
  Company Number: US-ABBOTT-11P-163-0731403-00

PATIENT
  Sex: Female
  Weight: 96.248 kg

DRUGS (6)
  1. CRESTOR [Concomitant]
     Indication: BLOOD CHOLESTEROL INCREASED
     Route: 048
  2. NEXIUM [Concomitant]
     Indication: GASTROOESOPHAGEAL REFLUX DISEASE
     Route: 048
  3. LUPRON DEPOT [Suspect]
     Indication: ENDOMETRIOSIS
     Route: 030
     Dates: start: 20101101, end: 20110606
  4. LISINOPRIL [Concomitant]
     Indication: HYPERTENSION
     Route: 048
  5. ALLEGRA D 24 HOUR [Concomitant]
     Indication: ALLERGIC SINUSITIS
     Dosage: ONCE DAILY AS NEEDED
     Route: 048
  6. NABUMETONE [Concomitant]
     Indication: ARTHRALGIA
     Route: 048

REACTIONS (3)
  - NIGHT SWEATS [None]
  - LOSS OF LIBIDO [None]
  - HOT FLUSH [None]
